FAERS Safety Report 23707387 (Version 1)
Quarter: 2024Q2

REPORT INFORMATION
  Report Type: Report from Study
  Country: CA (occurrence: CA)
  Receive Date: 20240404
  Receipt Date: 20240404
  Transmission Date: 20240716
  Serious: Yes (Hospitalization)
  Sender: FDA-Public Use
  Company Number: CA-Eisai-EC-2024-163034

PATIENT
  Age: 74 Year
  Sex: Male

DRUGS (3)
  1. LENVIMA [Suspect]
     Active Substance: LENVATINIB
     Indication: Hepatocellular carcinoma
     Dosage: 4MG ALTERNATING DAYS, WAS ON HOLD FOR A WEEK AND THEN RESUMED
     Route: 048
     Dates: start: 20230512, end: 202310
  2. LENVIMA [Suspect]
     Active Substance: LENVATINIB
     Route: 048
     Dates: start: 20231013, end: 202311
  3. LENVIMA [Suspect]
     Active Substance: LENVATINIB
     Dosage: LENVIMA PAUSED
     Route: 048
     Dates: end: 202403

REACTIONS (2)
  - Dizziness [Unknown]
  - Fall [Unknown]

NARRATIVE: CASE EVENT DATE: 20240301
